FAERS Safety Report 4617521-9 (Version None)
Quarter: 2005Q1

REPORT INFORMATION
  Report Type: 
  Country: None (occurrence: None)
  Receive Date: 20050324
  Receipt Date: 20050303
  Transmission Date: 20050727
  Serious: Yes (Hospitalization, Other)
  Sender: FDA-Public Use
  Company Number: HQWYE968009MAR05

PATIENT
  Sex: Female

DRUGS (7)
  1. ENBREL [Suspect]
     Indication: RHEUMATOID ARTHRITIS
     Dosage: NOT PROVIDED
     Dates: start: 20040101
  2. ENBREL [Suspect]
     Dosage: NOT PROVIDED
  3. INSULIN [Concomitant]
  4. PARACETAMOL [Concomitant]
  5. OXYCODONE HCL [Concomitant]
  6. METHOTREXATE [Concomitant]
  7. CELEBREX [Concomitant]

REACTIONS (10)
  - ANOREXIA [None]
  - CONDITION AGGRAVATED [None]
  - DYSPNOEA [None]
  - FATIGUE [None]
  - HYPERHIDROSIS [None]
  - HYPOAESTHESIA [None]
  - NAUSEA [None]
  - NERVE ROOT COMPRESSION [None]
  - PAIN [None]
  - SINUSITIS [None]
